FAERS Safety Report 9736426 (Version 1)
Quarter: 2013Q4

REPORT INFORMATION
  Report Type: Spontaneous
  Country: CA (occurrence: CA)
  Receive Date: 20131206
  Receipt Date: 20131206
  Transmission Date: 20140711
  Serious: Yes (Life-Threatening, Hospitalization, Other)
  Sender: FDA-Public Use
  Company Number: CA-BAYER-2013-145510

PATIENT
  Age: 47 Year
  Sex: Female

DRUGS (2)
  1. YAZ [Suspect]
     Dosage: 1 DF, QD
     Route: 065
  2. SYNTHROID [Concomitant]

REACTIONS (7)
  - Aphasia [Unknown]
  - Cerebral thrombosis [Unknown]
  - Coma [Unknown]
  - Convulsion [Unknown]
  - Pneumonia aspiration [Unknown]
  - Subarachnoid haemorrhage [Unknown]
  - Subdural haemorrhage [Unknown]
